FAERS Safety Report 20148429 (Version 1)
Quarter: 2021Q4

REPORT INFORMATION
  Report Type: Report from Study
  Country: US (occurrence: US)
  Receive Date: 20211204
  Receipt Date: 20211204
  Transmission Date: 20220303
  Serious: Yes (Other)
  Sender: FDA-Public Use
  Company Number: US-UNITED THERAPEUTICS-UNT-2021-024400

PATIENT
  Sex: Female

DRUGS (3)
  1. TREPROSTINIL SODIUM [Suspect]
     Active Substance: TREPROSTINIL SODIUM
     Indication: Pulmonary arterial hypertension
     Dosage: UNK
     Dates: start: 20211008
  2. TREPROSTINIL SODIUM [Suspect]
     Active Substance: TREPROSTINIL SODIUM
     Dosage: 54 ?G, QID
     Dates: start: 2021
  3. TREPROSTINIL SODIUM [Suspect]
     Active Substance: TREPROSTINIL SODIUM
     Dosage: 48 ?G, QID
     Dates: start: 202111

REACTIONS (3)
  - Loss of consciousness [Unknown]
  - Dyspnoea [Unknown]
  - Head discomfort [Unknown]

NARRATIVE: CASE EVENT DATE: 20210101
